FAERS Safety Report 6083855-7 (Version None)
Quarter: 2009Q1

REPORT INFORMATION
  Report Type: 
  Country: None (occurrence: None)
  Receive Date: 20090219
  Receipt Date: 20090212
  Transmission Date: 20090719
  Serious: Yes (Other)
  Sender: FDA-Public Use
  Company Number: US-TYCO HEALTHCARE/MALLINCKRODT-T200801574

PATIENT

DRUGS (22)
  1. OPTIMARK [Suspect]
     Indication: ANGIOGRAM
     Dosage: 40 ML (CC), UNK
     Dates: start: 20040205, end: 20040205
  2. CENTRUM SILVER                     /01292501/ [Concomitant]
     Indication: SUPPLEMENTATION THERAPY
     Dates: start: 20060101
  3. VITAMIN A [Concomitant]
     Dosage: 1.25 MG, PER MONTH
     Dates: start: 20070101
  4. SULFA                              /00150702/ [Concomitant]
     Indication: INFECTION PROPHYLAXIS
     Dates: start: 20060101
  5. HYDROCHLOROTHIAZIDE [Concomitant]
     Indication: ANTIINFLAMMATORY THERAPY
     Dosage: 12.5 MG, QD
     Dates: start: 20060101
  6. ACTOS [Concomitant]
     Indication: DIABETES MELLITUS
     Dosage: 15 MG, QD
     Dates: start: 20060101
  7. AMITRIPTYLINE HCL [Concomitant]
     Indication: SLEEP DISORDER
     Dosage: 25 MG, QD
     Dates: start: 20040101
  8. CELLCEPT [Concomitant]
     Indication: PROPHYLAXIS AGAINST TRANSPLANT REJECTION
     Dosage: 250 MG, QID
     Dates: start: 20060101
  9. CILOSTAZOL [Concomitant]
     Indication: ANGIOPATHY
     Dosage: 50 MG, BID
     Dates: start: 20040101
  10. HUMALOG [Concomitant]
     Indication: DIABETES MELLITUS
     Dosage: 5 IU, TID
     Dates: start: 20060101
  11. LANTUS [Concomitant]
     Indication: DIABETES MELLITUS
     Dosage: 40 IU, QD
     Dates: start: 20060101
  12. PLAVIX [Concomitant]
     Indication: ARTERIAL DISORDER
     Dosage: 75 MG, QD
     Dates: start: 20050101
  13. PREDNISONE [Concomitant]
     Indication: PROPHYLAXIS AGAINST TRANSPLANT REJECTION
     Dosage: 5 MG, QD
     Dates: start: 20060101
  14. PROGRAF [Concomitant]
     Indication: PROPHYLAXIS AGAINST TRANSPLANT REJECTION
     Dosage: .5 MG, BID
     Dates: start: 20060101
  15. SODIUM BICARBONATE [Concomitant]
     Indication: GASTROOESOPHAGEAL REFLUX DISEASE
     Dosage: 650 MG, BID
     Dates: start: 20050101
  16. SULFAMETHOXAZOLE AND TRIMETHOPRIM [Concomitant]
     Indication: PROPHYLAXIS AGAINST TRANSPLANT REJECTION
     Dosage: ONE, QD
     Dates: start: 20060101
  17. PHOSPHORUS [Concomitant]
     Indication: BLOOD PHOSPHORUS DECREASED
     Dosage: 250 MG, QD
     Dates: start: 20040101
  18. VYTORIN [Concomitant]
     Indication: BLOOD CHOLESTEROL INCREASED
     Dosage: 10/40, QD
     Dates: start: 20030101
  19. ATROPINE W/DIPHENOXYLATE           /00034001/ [Concomitant]
     Indication: DIARRHOEA
     Dosage: UNK, PRN
     Dates: start: 20060101
  20. PROMETHAZINE [Concomitant]
     Indication: NAUSEA
     Dosage: UNK, PRN
     Dates: start: 20060101
  21. PROPOXYPHENE NAPSYLATE W/ ACETAMINOPHEN [Concomitant]
     Indication: PAIN
     Dosage: UNK, PRN
     Dates: start: 20060101
  22. ASPIRIN [Concomitant]
     Indication: ANTIPLATELET THERAPY

REACTIONS (1)
  - NEPHROGENIC SYSTEMIC FIBROSIS [None]
